FAERS Safety Report 18948878 (Version 3)
Quarter: 2021Q1

REPORT INFORMATION
  Report Type: Report from Study
  Country: HN (occurrence: HN)
  Receive Date: 20210227
  Receipt Date: 20210327
  Transmission Date: 20210420
  Serious: Yes (Other)
  Sender: FDA-Public Use
  Company Number: NVSC2021HN039540

PATIENT
  Age: 38 Year
  Sex: Male
  Weight: 78.01 kg

DRUGS (7)
  1. SECUKINUMAB. [Suspect]
     Active Substance: SECUKINUMAB
     Indication: PSORIASIS
     Dosage: 300 MG, QMO
     Route: 058
     Dates: start: 20210121
  2. SECUKINUMAB. [Suspect]
     Active Substance: SECUKINUMAB
     Dosage: 300 MG, QMO
     Route: 058
  3. METHOTREXATE. [Suspect]
     Active Substance: METHOTREXATE
     Dosage: UNK UNK, QW, 6 OF 2.5 MG
     Route: 065
     Dates: start: 20210118, end: 20210218
  4. METHOTREXATE. [Suspect]
     Active Substance: METHOTREXATE
     Indication: PRODUCT USED FOR UNKNOWN INDICATION
     Dosage: 2.5 MG, QID (2 TABLETS AFTER BREAKFAST AND 2 TABLETS AFETER LUNCH)
     Route: 065
  5. OMEGA 3 [Concomitant]
     Active Substance: OMEGA-3 FATTY ACIDS
     Indication: PRODUCT USED FOR UNKNOWN INDICATION
     Dosage: 1 DF, QD
     Route: 065
     Dates: start: 20210118
  6. ZAMEN [Concomitant]
     Indication: PRODUCT USED FOR UNKNOWN INDICATION
     Dosage: 6 MG, QD
     Route: 048
     Dates: start: 20210118, end: 20210218
  7. FOLIC ACID. [Concomitant]
     Active Substance: FOLIC ACID
     Indication: PRODUCT USED FOR UNKNOWN INDICATION
     Dosage: 5 MG, QD
     Route: 048
     Dates: start: 20210118, end: 20210218

REACTIONS (10)
  - Rash [Recovered/Resolved]
  - Body temperature increased [Recovered/Resolved]
  - Fatigue [Recovering/Resolving]
  - Poor quality sleep [Recovering/Resolving]
  - Anxiety [Recovered/Resolved]
  - Respiratory distress [Recovered/Resolved]
  - Gastritis [Unknown]
  - Headache [Recovered/Resolved]
  - Dizziness [Recovering/Resolving]
  - Insomnia [Recovered/Resolved]

NARRATIVE: CASE EVENT DATE: 202101
